FAERS Safety Report 6784183-4 (Version None)
Quarter: 2010Q2

REPORT INFORMATION
  Report Type: 
  Country: None (occurrence: None)
  Receive Date: 20100622
  Receipt Date: 20100609
  Transmission Date: 20101027
  Serious: Yes (Hospitalization, Other)
  Sender: FDA-Public Use
  Company Number: CH-ELI_LILLY_AND_COMPANY-CH201006002699

PATIENT
  Age: 33 Year
  Sex: Female

DRUGS (3)
  1. FLUCTINE [Suspect]
     Dosage: 100 MG, OTHER
     Route: 048
     Dates: start: 20090121, end: 20090121
  2. VALIUM [Concomitant]
     Dosage: 20 D/F, OTHER
     Route: 048
     Dates: start: 20090121, end: 20090121
  3. ETHANOL [Concomitant]
     Dosage: 0.5 LITER, OTHER
     Route: 048
     Dates: start: 20090121, end: 20090121

REACTIONS (5)
  - ALCOHOL INTERACTION [None]
  - COMA [None]
  - INTENTIONAL OVERDOSE [None]
  - POTENTIATING DRUG INTERACTION [None]
  - SUICIDE ATTEMPT [None]
